FAERS Safety Report 14273066 (Version 3)
Quarter: 2020Q3

REPORT INFORMATION
  Report Type: Spontaneous
  Country: FR (occurrence: FR)
  Receive Date: 20171212
  Receipt Date: 20200703
  Transmission Date: 20201102
  Serious: Yes (Other)
  Sender: FDA-Public Use
  Company Number: FR-LUPIN PHARMACEUTICALS INC.-2017-07059

PATIENT
  Age: 8 Year
  Sex: Male

DRUGS (5)
  1. CELECOXIB. [Suspect]
     Active Substance: CELECOXIB
     Indication: ATYPICAL TERATOID/RHABDOID TUMOUR OF CNS
     Dosage: DAY 1, CONTINUOUS
     Route: 048
     Dates: start: 201604
  2. BEVACIZUMAB. [Suspect]
     Active Substance: BEVACIZUMAB
     Indication: ATYPICAL TERATOID/RHABDOID TUMOUR OF CNS
     Dosage: 10 MG/KG, DAY1, 15, CYCLICALLY
     Route: 042
     Dates: start: 201604
  3. CYTARABINE. [Suspect]
     Active Substance: CYTARABINE
     Indication: ATYPICAL TERATOID/RHABDOID TUMOUR OF CNS
     Dosage: LIPOSOMAL CYTARABINE 35 MG INTRATHECAL DAY 1 ; CYCLICAL
     Route: 039
     Dates: start: 201604
  4. ETOPOSIDE. [Suspect]
     Active Substance: ETOPOSIDE
     Indication: ATYPICAL TERATOID/RHABDOID TUMOUR OF CNS
     Dosage: 50 MG/M2, UNK
     Route: 065
     Dates: start: 201604
  5. CYCLOPHOSPHAMIDE. [Suspect]
     Active Substance: CYCLOPHOSPHAMIDE
     Indication: ATYPICAL TERATOID/RHABDOID TUMOUR OF CNS
     Dosage: ALTERNATING 21 DAY CYCLES ; CYCLICAL
     Route: 048
     Dates: start: 201604

REACTIONS (5)
  - Neutropenia [Unknown]
  - Injection site reaction [Unknown]
  - Influenza [Unknown]
  - Asthenia [Unknown]
  - Toxicity to various agents [Unknown]
